FAERS Safety Report 17510844 (Version 2)
Quarter: 2020Q2

REPORT INFORMATION
  Report Type: Report from Study
  Country: GB (occurrence: GB)
  Receive Date: 20200306
  Receipt Date: 20200416
  Transmission Date: 20200713
  Serious: Yes (Other)
  Sender: FDA-Public Use
  Company Number: NVSC2020GB063480

PATIENT
  Sex: Male

DRUGS (1)
  1. HYRIMOZ [Suspect]
     Active Substance: ADALIMUMAB-ADAZ
     Indication: PSORIATIC ARTHROPATHY
     Dosage: 40 MG, (Q2W EVERY 2 WEEKS, AS DIRECTED )
     Route: 065

REACTIONS (1)
  - Nephrolithiasis [Unknown]
